FAERS Safety Report 8345872-3 (Version None)
Quarter: 2012Q2

REPORT INFORMATION
  Report Type: 
  Country: None (occurrence: None)
  Receive Date: 20120509
  Receipt Date: 20120430
  Transmission Date: 20120825
  Serious: No
  Sender: FDA-Public Use
  Company Number: US-BIOGENIDEC-2012BI015324

PATIENT
  Sex: Female

DRUGS (4)
  1. WELLBUTRIN [Concomitant]
     Indication: DEPRESSION
     Dates: start: 20110101
  2. COPAXONE [Concomitant]
     Indication: MULTIPLE SCLEROSIS
  3. TYSABRI [Suspect]
     Indication: MULTIPLE SCLEROSIS
     Route: 042
     Dates: start: 20120103
  4. AVONEX [Concomitant]
     Indication: MULTIPLE SCLEROSIS
     Route: 030
     Dates: start: 20120428

REACTIONS (6)
  - DEPRESSION [None]
  - VOMITING [None]
  - QUALITY OF LIFE DECREASED [None]
  - NAUSEA [None]
  - CONDITION AGGRAVATED [None]
  - DECREASED APPETITE [None]
